FAERS Safety Report 20900390 (Version 2)
Quarter: 2022Q2

REPORT INFORMATION
  Report Type: Report from Study
  Country: MA (occurrence: MA)
  Receive Date: 20220601
  Receipt Date: 20220616
  Transmission Date: 20220721
  Serious: Yes (Other)
  Sender: FDA-Public Use
  Company Number: MA-NOVARTISPH-NVSC2022MA090347

PATIENT
  Sex: Female
  Weight: 45 kg

DRUGS (1)
  1. COSENTYX [Suspect]
     Active Substance: SECUKINUMAB
     Indication: Psoriatic arthropathy
     Dosage: 150 MG, QW
     Route: 058
     Dates: start: 20220224

REACTIONS (9)
  - Helminthic infection [Recovering/Resolving]
  - Dizziness [Unknown]
  - Somnolence [Unknown]
  - Illness [Unknown]
  - Abdominal pain upper [Unknown]
  - Decreased appetite [Unknown]
  - Weight decreased [Unknown]
  - Abdominal discomfort [Unknown]
  - Gastroenteritis bacterial [Unknown]
